FAERS Safety Report 5565343-7 (Version None)
Quarter: 2007Q4

REPORT INFORMATION
  Report Type: 
  Country: None (occurrence: None)
  Receive Date: 20071218
  Receipt Date: 20070521
  Transmission Date: 20080405
  Serious: No
  Sender: FDA-Public Use
  Company Number: US-BAUSCH-2007BL001691

PATIENT
  Age: 77 Year
  Sex: Female

DRUGS (5)
  1. TOBRAMYCIN [Suspect]
     Route: 047
     Dates: start: 20070301, end: 20070517
  2. LOTEMAX [Suspect]
     Route: 047
     Dates: start: 20070301
  3. VIGAMOX /USA/ [Suspect]
     Route: 047
     Dates: start: 20070301
  4. VIGAMOX /USA/ [Suspect]
     Indication: EYE INFECTION
     Route: 047
     Dates: start: 20070301
  5. CHOLESTEROL- AND TRIGLYCERIDE REDUCERS [Concomitant]
     Indication: BLOOD CHOLESTEROL INCREASED

REACTIONS (1)
  - DRUG INEFFECTIVE [None]
